FAERS Safety Report 6811008-0 (Version None)
Quarter: 2010Q2

REPORT INFORMATION
  Report Type: 
  Country: None (occurrence: None)
  Receive Date: 20100630
  Receipt Date: 20090224
  Transmission Date: 20101027
  Serious: No
  Sender: FDA-Public Use
  Company Number: US-PFIZER INC-2009175323

PATIENT

DRUGS (1)
  1. ESTRING [Suspect]
     Dosage: UNK
     Dates: end: 20090223

REACTIONS (2)
  - BLADDER DISORDER [None]
  - DRUG INEFFECTIVE [None]
